FAERS Safety Report 25084929 (Version 1)
Quarter: 2025Q1

REPORT INFORMATION
  Report Type: Spontaneous
  Country: CA (occurrence: CA)
  Receive Date: 20250317
  Receipt Date: 20250317
  Transmission Date: 20250408
  Serious: Yes (Hospitalization)
  Sender: ASTELLAS
  Company Number: CA-PFIZER INC-PV202500028911

PATIENT
  Age: 84 Year
  Sex: Female

DRUGS (1)
  1. PADCEV [Suspect]
     Active Substance: ENFORTUMAB VEDOTIN-EJFV
     Indication: Product used for unknown indication
     Route: 042
     Dates: start: 20250213, end: 2025

REACTIONS (1)
  - Blood test abnormal [Unknown]

NARRATIVE: CASE EVENT DATE: 20250101
